FAERS Safety Report 25858859 (Version 1)
Quarter: 2025Q3

REPORT INFORMATION
  Report Type: Spontaneous
  Country: US (occurrence: US)
  Receive Date: 20250929
  Receipt Date: 20250929
  Transmission Date: 20251021
  Serious: Yes (Other)
  Sender: ACADIA PHARMACEUTICALS
  Company Number: US-ACADIA PHARMACEUTICALS INC.-ACA-2025-TRF-010677

PATIENT
  Age: 5 Year

DRUGS (7)
  1. DAYBUE [Suspect]
     Active Substance: TROFINETIDE
     Indication: Product used for unknown indication
     Dosage: 20 MILLILITER, BID
     Route: 048
     Dates: start: 20230819
  2. EPIDIOLEX [Concomitant]
     Active Substance: CANNABIDIOL
  3. DIASTAT ACUDIAL [Concomitant]
     Active Substance: DIAZEPAM
  4. OMEPRAZOLE [Concomitant]
     Active Substance: OMEPRAZOLE
  5. ZOFRAN [Concomitant]
     Active Substance: ONDANSETRON HYDROCHLORIDE
  6. TRILEPTAL [Concomitant]
     Active Substance: OXCARBAZEPINE
  7. PROZAC [Concomitant]
     Active Substance: FLUOXETINE HYDROCHLORIDE

REACTIONS (4)
  - Seizure [Unknown]
  - Rett syndrome [Unknown]
  - Condition aggravated [Unknown]
  - Underdose [Unknown]
